FAERS Safety Report 23576921 (Version 2)
Quarter: 2024Q3

REPORT INFORMATION
  Report Type: Report from Study
  Country: CA (occurrence: CA)
  Receive Date: 20240228
  Receipt Date: 20240918
  Transmission Date: 20241017
  Serious: Yes (Hospitalization)
  Sender: ABBVIE
  Company Number: CA-JNJFOC-20240259506

PATIENT
  Sex: Female

DRUGS (1)
  1. IMBRUVICA [Suspect]
     Active Substance: IBRUTINIB
     Indication: Product used for unknown indication
     Route: 048

REACTIONS (6)
  - Pleural effusion [Unknown]
  - Hypertension [Unknown]
  - Contusion [Unknown]
  - Peripheral swelling [Unknown]
  - Oedema peripheral [Unknown]
  - Fatigue [Unknown]
